FAERS Safety Report 21154873 (Version 1)
Quarter: 2022Q3

REPORT INFORMATION
  Report Type: Other
  Country: None (occurrence: IT)
  Receive Date: 20220801
  Receipt Date: 20220801
  Transmission Date: 20221026
  Serious: Yes (Hospitalization)
  Sender: FDA-Public Use
  Company Number: IT-Appco Pharma LLC-2131408

PATIENT
  Age: 7 Day
  Sex: Female

DRUGS (1)
  1. VENLAFAXINE [Suspect]
     Active Substance: VENLAFAXINE HYDROCHLORIDE
     Indication: Product used for unknown indication
     Route: 050

REACTIONS (6)
  - Maternal exposure during breast feeding [Unknown]
  - Poor feeding infant [Recovered/Resolved]
  - Somnolence [Recovered/Resolved]
  - Weight decrease neonatal [Recovered/Resolved]
  - Hypotonia neonatal [Recovered/Resolved]
  - Poor weight gain neonatal [Recovered/Resolved]
